FAERS Safety Report 13583050 (Version 4)
Quarter: 2017Q3

REPORT INFORMATION
  Report Type: Spontaneous
  Country: US (occurrence: US)
  Receive Date: 20170525
  Receipt Date: 20170913
  Transmission Date: 20171127
  Serious: Yes (Death, Hospitalization)
  Sender: FDA-Public Use
  Company Number: US-ACTELION-A-NJ2017-154200

PATIENT
  Age: 59 Year
  Sex: Female
  Weight: 64.85 kg

DRUGS (5)
  1. COUMADIN [Concomitant]
     Active Substance: WARFARIN SODIUM
  2. OPSUMIT [Suspect]
     Active Substance: MACITENTAN
     Indication: PULMONARY HYPERTENSION
     Dosage: 10 MG, QD
     Route: 048
     Dates: end: 20170905
  3. VELETRI [Suspect]
     Active Substance: EPOPROSTENOL
     Dosage: 24.22 NG/KG, PER MIN
     Route: 042
     Dates: end: 20170905
  4. VELETRI [Suspect]
     Active Substance: EPOPROSTENOL
     Indication: PULMONARY HYPERTENSION
     Dosage: 18.75 NG/KG, PER MIN
     Route: 042
  5. ADCIRCA [Concomitant]
     Active Substance: TADALAFIL

REACTIONS (9)
  - Oedema peripheral [Unknown]
  - Transplant evaluation [Unknown]
  - Abdominal pain [Unknown]
  - Pulmonary arterial hypertension [Fatal]
  - Vomiting [Unknown]
  - Undifferentiated connective tissue disease [Fatal]
  - Dyspnoea [Unknown]
  - Pleural effusion [Unknown]
  - Diarrhoea [Unknown]
